FAERS Safety Report 8773753 (Version 3)
Quarter: 2012Q4

REPORT INFORMATION
  Report Type: 
  Country: US (occurrence: US)
  Receive Date: 20120907
  Receipt Date: 20121026
  Transmission Date: 20130627
  Serious: Yes (Other)
  Sender: FDA-Public Use
  Company Number: US-PFIZER INC-2012219565

PATIENT
  Age: 58 Year
  Sex: Female
  Weight: 127 kg

DRUGS (15)
  1. LYRICA [Suspect]
     Indication: FIBROMYALGIA
     Dosage: UNK
     Dates: start: 20120905, end: 20120910
  2. CELEBREX [Concomitant]
     Indication: ARTHRITIS
     Dosage: 200 mg, 2x/day
  3. CELEBREX [Concomitant]
     Indication: ARTHROPATHY
  4. CELEBREX [Concomitant]
     Indication: MUSCULOSKELETAL DISCOMFORT
  5. CELEBREX [Concomitant]
     Indication: MUSCULOSKELETAL DISCOMFORT
  6. CELEBREX [Concomitant]
     Indication: BACK DISORDER
  7. BONIVA [Concomitant]
     Indication: OSTEOARTHRITIS
     Dosage: 150 mg, monthly
  8. ACETAMINOPHEN/TRAMADOL HYDROCHLORIDE [Concomitant]
     Indication: ARTHRITIS
     Dosage: 650/75 mg, 2x/day
  9. ACETAMINOPHEN/TRAMADOL HYDROCHLORIDE [Concomitant]
     Indication: ARTHROPATHY
  10. ACETAMINOPHEN/TRAMADOL HYDROCHLORIDE [Concomitant]
     Indication: MUSCULOSKELETAL DISCOMFORT
  11. ACETAMINOPHEN/TRAMADOL HYDROCHLORIDE [Concomitant]
     Indication: MUSCULOSKELETAL DISCOMFORT
  12. ACETAMINOPHEN/TRAMADOL HYDROCHLORIDE [Concomitant]
     Indication: BACK DISORDER
  13. COMBIVENT [Concomitant]
     Indication: ASTHMA
     Dosage: two puffs, as needed
  14. ASMANEX [Concomitant]
     Indication: ASTHMA
     Dosage: one puff, 2x/day
  15. LEVOTHYROXINE [Concomitant]
     Indication: THYROID DISORDER
     Dosage: 0.075 mg, daily

REACTIONS (5)
  - Lip oedema [Recovered/Resolved]
  - Tongue oedema [Recovered/Resolved]
  - Gingival swelling [Recovered/Resolved]
  - Obesity [Unknown]
  - Malabsorption [Unknown]
